FAERS Safety Report 13630321 (Version 4)
Quarter: 2017Q3

REPORT INFORMATION
  Report Type: Report from Study
  Country: BR (occurrence: BR)
  Receive Date: 20170608
  Receipt Date: 20170712
  Transmission Date: 20171127
  Serious: Yes (Other)
  Sender: FDA-Public Use
  Company Number: PHHY2017BR083089

PATIENT
  Age: 9 Year
  Sex: Male
  Weight: 21.5 kg

DRUGS (7)
  1. RITALINA [Suspect]
     Active Substance: METHYLPHENIDATE HYDROCHLORIDE
     Dosage: 3 DF, QD (GRADUALLY INCREASED TO 3 TABLETS)
     Route: 048
  2. RITALINA [Suspect]
     Active Substance: METHYLPHENIDATE HYDROCHLORIDE
     Dosage: 0.5 DF, UNK
     Route: 048
  3. RISPERIDONE. [Suspect]
     Active Substance: RISPERIDONE
     Indication: PRODUCT USED FOR UNKNOWN INDICATION
     Dosage: 2 DF, QD (FOR 4 MONTHS)
     Route: 065
     Dates: start: 201701
  4. FLORAL [Concomitant]
     Indication: SLEEP DISORDER
     Dosage: 8 DRP, QD (FOR 20 DAYS), (STARED 2 MONTHS AGO)
     Route: 048
  5. RITALINA [Suspect]
     Active Substance: METHYLPHENIDATE HYDROCHLORIDE
     Indication: ATTENTION DEFICIT/HYPERACTIVITY DISORDER
     Dosage: 0.25 DF, UNK
     Route: 048
  6. RITALIN LA [Suspect]
     Active Substance: METHYLPHENIDATE HYDROCHLORIDE
     Indication: ATTENTION DEFICIT/HYPERACTIVITY DISORDER
     Dosage: 1 DF, QD
     Route: 048
  7. RITALIN LA [Suspect]
     Active Substance: METHYLPHENIDATE HYDROCHLORIDE
     Dosage: 3 DF, QD (SINCE HE WAS 6 YEARS OLD)
     Route: 048

REACTIONS (9)
  - Disease recurrence [Unknown]
  - Agitation [Unknown]
  - Wrong technique in product usage process [Unknown]
  - Drug administered to patient of inappropriate age [Unknown]
  - Restlessness [Unknown]
  - Abnormal behaviour [Unknown]
  - Nervousness [Unknown]
  - Disturbance in attention [Unknown]
  - Seizure [Recovered/Resolved]

NARRATIVE: CASE EVENT DATE: 201701
